FAERS Safety Report 25220279 (Version 4)
Quarter: 2025Q2

REPORT INFORMATION
  Report Type: Report from Study
  Country: US (occurrence: US)
  Receive Date: 20250421
  Receipt Date: 20250605
  Transmission Date: 20250716
  Serious: Yes (Hospitalization, Other)
  Sender: ALEXION PHARMACEUTICALS
  Company Number: US-AstraZeneca-CH-00852718A

PATIENT

DRUGS (3)
  1. ULTOMIRIS [Suspect]
     Active Substance: RAVULIZUMAB-CWVZ
     Route: 065
  2. SOLIRIS [Suspect]
     Active Substance: ECULIZUMAB
     Dosage: 1200 MILLIGRAM, QW
     Route: 065
  3. BELATACEPT [Concomitant]
     Active Substance: BELATACEPT
     Dosage: UNK, Q2W
     Route: 065

REACTIONS (11)
  - Acidosis [Unknown]
  - Renal impairment [Unknown]
  - Thrombotic microangiopathy [Unknown]
  - Blood lactate dehydrogenase abnormal [Unknown]
  - Bruxism [Unknown]
  - Vision blurred [Unknown]
  - Hypertension [Unknown]
  - Abdominal pain [Unknown]
  - Injection site bruising [Unknown]
  - Tremor [Unknown]
  - Blood creatinine increased [Unknown]
